FAERS Safety Report 17854302 (Version 1)
Quarter: 2020Q2

REPORT INFORMATION
  Report Type: Spontaneous
  Country: US (occurrence: US)
  Receive Date: 20200603
  Receipt Date: 20200603
  Transmission Date: 20200714
  Serious: No
  Sender: FDA-Public Use
  Company Number: US-ACCORD-173455

PATIENT
  Age: 45 Year
  Sex: Female
  Weight: 56.7 kg

DRUGS (8)
  1. ZOFRAN [Concomitant]
     Active Substance: ONDANSETRON HYDROCHLORIDE
  2. XANAX [Concomitant]
     Active Substance: ALPRAZOLAM
  3. TRULANCE [Concomitant]
     Active Substance: PLECANATIDE
     Dosage: 3 MG
  4. AKYNZEO [Concomitant]
     Active Substance: NETUPITANT\PALONOSETRON HYDROCHLORIDE
     Dosage: 300/0.5 MG
  5. VASCEPA [Concomitant]
     Active Substance: ICOSAPENT ETHYL
  6. LOPID [Concomitant]
     Active Substance: GEMFIBROZIL
  7. FIORICET [Concomitant]
     Active Substance: ACETAMINOPHEN\BUTALBITAL\CAFFEINE
  8. CAPECITABINE. [Suspect]
     Active Substance: CAPECITABINE
     Indication: BREAST CANCER
     Dosage: 3 TABLETS BID
     Route: 048
     Dates: start: 20191017, end: 20191213

REACTIONS (2)
  - Skin erosion [Unknown]
  - Skin discolouration [Unknown]

NARRATIVE: CASE EVENT DATE: 20191213
